FAERS Safety Report 9348269 (Version 1)
Quarter: 2013Q2

REPORT INFORMATION
  Report Type: Spontaneous
  Country: US (occurrence: US)
  Receive Date: 20130614
  Receipt Date: 20130614
  Transmission Date: 20140414
  Serious: Yes (Other)
  Sender: FDA-Public Use
  Company Number: US-PFIZER INC-2013177197

PATIENT
  Age: 51 Year
  Sex: Male
  Weight: 73.47 kg

DRUGS (2)
  1. CHANTIX [Suspect]
     Indication: SMOKING CESSATION THERAPY
     Dosage: 0.5 MG, 1X/DAY
     Route: 048
     Dates: start: 20130606
  2. LISINOPRIL /HYDROCHLOROTHIAZIDE [Concomitant]
     Indication: HYPERTENSION
     Dosage: 20MG LISINOPRIL/ 12.5MG HYDROCHLOROTHIAZIDE, DAILY

REACTIONS (3)
  - Lymphadenopathy [Not Recovered/Not Resolved]
  - Local swelling [Not Recovered/Not Resolved]
  - Neck pain [Not Recovered/Not Resolved]
